FAERS Safety Report 11124966 (Version 1)
Quarter: 2015Q2

REPORT INFORMATION
  Report Type: Spontaneous
  Country: FR (occurrence: FR)
  Receive Date: 20150520
  Receipt Date: 20150520
  Transmission Date: 20150821
  Serious: Yes (Hospitalization)
  Sender: FDA-Public Use
  Company Number: FR-ASTRAZENECA-2015SE45767

PATIENT
  Age: 30485 Day
  Sex: Male

DRUGS (5)
  1. CRESTOR [Suspect]
     Active Substance: ROSUVASTATIN CALCIUM
     Indication: DYSLIPIDAEMIA
     Route: 048
  2. PREVISCAN [Suspect]
     Active Substance: FLUINDIONE
     Indication: SUPRAVENTRICULAR TACHYCARDIA
     Route: 048
  3. FLECAINE [Suspect]
     Active Substance: FLECAINIDE
     Indication: TACHYCARDIA
     Route: 048
  4. LEVOTHYROX [Suspect]
     Active Substance: LEVOTHYROXINE
     Indication: HYPOTHYROIDISM
     Route: 048
  5. AMLODIPINE [Suspect]
     Active Substance: AMLODIPINE BESYLATE
     Indication: HYPERTENSION
     Route: 048
     Dates: start: 20150120, end: 20150212

REACTIONS (6)
  - Thrombocytopenia [Not Recovered/Not Resolved]
  - Normochromic normocytic anaemia [None]
  - Iatrogenic injury [None]
  - Bone marrow disorder [None]
  - Anaemia [Not Recovered/Not Resolved]
  - Hypertension [Unknown]

NARRATIVE: CASE EVENT DATE: 20150211
